FAERS Safety Report 8128886-8 (Version None)
Quarter: 2012Q1

REPORT INFORMATION
  Report Type: 
  Country: None (occurrence: None)
  Receive Date: 20120210
  Receipt Date: 20120201
  Transmission Date: 20120608
  Serious: Yes (Other)
  Sender: FDA-Public Use
  Company Number: DE-PFIZER INC-2012027090

PATIENT
  Age: 71 Year
  Sex: Male
  Weight: 88 kg

DRUGS (1)
  1. SUNITINIB MALATE [Suspect]
     Indication: METASTATIC RENAL CELL CARCINOMA
     Dosage: 50 MG, 1X/DAY, SCHEDULE 4/2
     Dates: start: 20060120

REACTIONS (2)
  - NEOPLASM MALIGNANT [None]
  - MALIGNANT MELANOMA [None]
